FAERS Safety Report 24612302 (Version 1)
Quarter: 2024Q4

REPORT INFORMATION
  Report Type: Spontaneous
  Country: AU (occurrence: AU)
  Receive Date: 20241113
  Receipt Date: 20241113
  Transmission Date: 20250115
  Serious: Yes (Other)
  Sender: ALKEM
  Company Number: AU-ALKEM LABORATORIES LIMITED-AU-ALKEM-2024-24379

PATIENT
  Age: 12 Month

DRUGS (3)
  1. SIROLIMUS [Suspect]
     Active Substance: SIROLIMUS
     Indication: Congenital hyperinsulinaemic hypoglycaemia
     Dosage: 6 MILLIGRAM/SQ. METER, QD
     Route: 065
  2. SIROLIMUS [Suspect]
     Active Substance: SIROLIMUS
     Indication: Hyperinsulinaemic hypoglycaemia
  3. OCTREOTIDE [Concomitant]
     Active Substance: OCTREOTIDE
     Indication: Product used for unknown indication
     Dosage: UNK
     Route: 065

REACTIONS (1)
  - Growth failure [Unknown]
